FAERS Safety Report 12626864 (Version 4)
Quarter: 2016Q3

REPORT INFORMATION
  Report Type: Spontaneous
  Country: US (occurrence: US)
  Receive Date: 20160805
  Receipt Date: 20160817
  Transmission Date: 20161109
  Serious: Yes (Hospitalization)
  Sender: FDA-Public Use
  Company Number: US-PFIZER INC-2016366543

PATIENT
  Age: 50 Year
  Sex: Female

DRUGS (1)
  1. EMBEDA [Suspect]
     Active Substance: MORPHINE SULFATE\NALTREXONE HYDROCHLORIDE
     Indication: PAIN
     Dosage: 30 MG, 2X/DAY
     Route: 048
     Dates: start: 20160719, end: 20160721

REACTIONS (2)
  - Dyspnoea [Recovering/Resolving]
  - Chest discomfort [Recovering/Resolving]
